FAERS Safety Report 8160813-X (Version None)
Quarter: 2012Q1

REPORT INFORMATION
  Report Type: 
  Country: None (occurrence: None)
  Receive Date: 20120223
  Receipt Date: 20120220
  Transmission Date: 20120608
  Serious: Yes (Death)
  Sender: FDA-Public Use
  Company Number: PHEH2012US004258

PATIENT
  Sex: Male

DRUGS (10)
  1. ENALAPRIL MALEATE [Concomitant]
  2. BENTYL [Concomitant]
  3. GLEEVEC [Suspect]
     Indication: GASTROINTESTINAL NEOPLASM
     Dosage: 400 MG, DAILY
     Route: 048
     Dates: start: 20090122
  4. TOPROL-XL [Concomitant]
  5. FLOMAX [Concomitant]
  6. PROTONIX [Concomitant]
  7. COUMADIN [Concomitant]
  8. NORVASC [Concomitant]
  9. IRON [Concomitant]
  10. VICODIN [Concomitant]

REACTIONS (1)
  - DEATH [None]
